FAERS Safety Report 13919718 (Version 1)
Quarter: 2017Q3

REPORT INFORMATION
  Report Type: Spontaneous
  Country: US (occurrence: US)
  Receive Date: 20170829
  Receipt Date: 20170829
  Transmission Date: 20171127
  Serious: No
  Sender: FDA-Public Use
  Company Number: None

PATIENT
  Age: 43 Year
  Sex: Female
  Weight: 54.9 kg

DRUGS (1)
  1. TERBINAFINE. [Suspect]
     Active Substance: TERBINAFINE
     Indication: ONYCHOMYCOSIS
     Dosage: ?          QUANTITY:1 TABLET(S);?
     Route: 048
     Dates: start: 20161218, end: 20170209

REACTIONS (9)
  - Mouth swelling [None]
  - Tongue discomfort [None]
  - Hypersensitivity [None]
  - Gastrooesophageal reflux disease [None]
  - Cholecystitis [None]
  - Swollen tongue [None]
  - Oral pain [None]
  - Gastrointestinal inflammation [None]
  - Intestinal villi atrophy [None]

NARRATIVE: CASE EVENT DATE: 20170209
